FAERS Safety Report 21418550 (Version 1)
Quarter: 2022Q4

REPORT INFORMATION
  Report Type: Spontaneous
  Country: IN (occurrence: IN)
  Receive Date: 20221006
  Receipt Date: 20221006
  Transmission Date: 20230113
  Serious: Yes (Hospitalization, Other)
  Sender: FDA-Public Use
  Company Number: IN-INSUD PHARMA-2209IN04016

PATIENT

DRUGS (7)
  1. PROGESTERONE [Suspect]
     Active Substance: PROGESTERONE
     Indication: In vitro fertilisation
     Dosage: 100 MILLIGRAM, QD
     Route: 030
  2. DYDROGESTERONE [Suspect]
     Active Substance: DYDROGESTERONE
     Indication: In vitro fertilisation
     Dosage: 10 MILLIGRAM, BID
     Route: 048
  3. ESTRADIOL VALERATE [Suspect]
     Active Substance: ESTRADIOL VALERATE
     Indication: In vitro fertilisation
     Dosage: 2 MILLIGRAM, BID
     Route: 065
  4. LEUPROLIDE ACETATE [Suspect]
     Active Substance: LEUPROLIDE ACETATE
     Indication: Controlled ovarian stimulation
     Dosage: INJECTION DAILY FOR 14 DAYS
     Route: 058
  5. LEUPROLIDE ACETATE [Suspect]
     Active Substance: LEUPROLIDE ACETATE
     Dosage: REDUCED TO 0.25 MG ON DAY 2 OF MENSES
  6. GONAL-F [Suspect]
     Active Substance: FOLLITROPIN
     Indication: Controlled ovarian stimulation
     Dosage: 250 INTERNATIONAL UNIT DAILY, STARTED ON DAY 2 OF MENSES
     Route: 058
  7. CHORIOGONADOTROPIN ALFA [Suspect]
     Active Substance: CHORIOGONADOTROPIN ALFA
     Indication: Controlled ovarian stimulation
     Dosage: 250 MICROGRAM
     Route: 058

REACTIONS (16)
  - Ovarian hyperstimulation syndrome [Recovered/Resolved]
  - Ovarian enlargement [Recovered/Resolved]
  - Vomiting [Recovered/Resolved]
  - Abdominal pain [Recovered/Resolved]
  - Abdominal distension [Recovered/Resolved]
  - Haemoconcentration [Recovered/Resolved]
  - Leukocytosis [Recovered/Resolved]
  - Ascites [Recovered/Resolved]
  - Hypertransaminasaemia [Recovered/Resolved]
  - Haemorrhagic ascites [Recovered/Resolved]
  - Pallor [Recovered/Resolved]
  - Respiratory distress [Recovered/Resolved]
  - Pleural effusion [Recovered/Resolved]
  - Atelectasis [Recovered/Resolved]
  - Oedema [Recovered/Resolved]
  - Hypoalbuminaemia [Recovered/Resolved]
